FAERS Safety Report 17856281 (Version 1)
Quarter: 2020Q2

REPORT INFORMATION
  Report Type: Spontaneous
  Country: DE (occurrence: DE)
  Receive Date: 20200603
  Receipt Date: 20200603
  Transmission Date: 20200714
  Serious: Yes (Other)
  Sender: FDA-Public Use
  Company Number: DE-MYLANLABS-2020M1053865

PATIENT
  Age: 81 Year
  Sex: Male

DRUGS (2)
  1. TAMSULOSIN STADA [Suspect]
     Active Substance: TAMSULOSIN
     Indication: BENIGN PROSTATIC HYPERPLASIA
     Dosage: UNK
     Route: 048
  2. BISOPROLOL [Suspect]
     Active Substance: BISOPROLOL
     Indication: PRODUCT USED FOR UNKNOWN INDICATION
     Dosage: UNK

REACTIONS (8)
  - Sense of oppression [Unknown]
  - Palpitations [Unknown]
  - Dyspnoea [Unknown]
  - Supraventricular extrasystoles [Unknown]
  - Hypotension [Unknown]
  - Atrial flutter [Unknown]
  - Supraventricular tachycardia [Unknown]
  - Dizziness [Unknown]
